FAERS Safety Report 5489577-5 (Version None)
Quarter: 2007Q4

REPORT INFORMATION
  Report Type: 
  Country: None (occurrence: None)
  Receive Date: 20071018
  Receipt Date: 20070827
  Transmission Date: 20080405
  Serious: Yes (Death)
  Sender: FDA-Public Use
  Company Number: US-PURDUE-USA_2007_0029033

PATIENT
  Age: 20 Year
  Sex: Male

DRUGS (6)
  1. OXYCONTIN [Suspect]
     Indication: MIGRAINE
     Dosage: 20 MG, BID
     Route: 048
     Dates: start: 20001030, end: 20001101
  2. PRILOSEC [Concomitant]
     Indication: DRUG USE FOR UNKNOWN INDICATION
     Dosage: 20 MG, DAILY
     Route: 048
  3. VALIUM [Concomitant]
     Indication: DRUG USE FOR UNKNOWN INDICATION
     Dosage: UNK MG, UNK
     Route: 048
  4. DECADRON [Concomitant]
     Indication: DRUG USE FOR UNKNOWN INDICATION
     Dosage: UNK MG, UNK
     Route: 048
  5. MIRTAZAPINE [Suspect]
     Indication: DRUG USE FOR UNKNOWN INDICATION
     Dosage: UNK MG, UNK
     Route: 048
  6. MARIJUANA [Suspect]
     Indication: DRUG USE FOR UNKNOWN INDICATION
     Dosage: UNK, UNK

REACTIONS (2)
  - EUPHORIC MOOD [None]
  - GLIOMA [None]
